FAERS Safety Report 8203175-1 (Version None)
Quarter: 2012Q1

REPORT INFORMATION
  Report Type: 
  Country: None (occurrence: None)
  Receive Date: 20120312
  Receipt Date: 20120227
  Transmission Date: 20120608
  Serious: Yes (Other)
  Sender: FDA-Public Use
  Company Number: CHPA2012US004095

PATIENT
  Sex: Female

DRUGS (6)
  1. EXCEDRIN (MIGRAINE) [Suspect]
     Indication: HEADACHE
     Dosage: 2 DF AT A TIME, 6 DF A DAY
     Route: 048
     Dates: end: 20120101
  2. SIMVASTATIN [Concomitant]
     Dosage: UNK
  3. DRUG THERAPY NOS [Concomitant]
     Dosage: UNK
  4. EXCEDRIN EXTRA STRENGTH TABLETS [Suspect]
     Indication: HEADACHE
     Dosage: 2 DF AT A TIME, 6 DF A DAY
     Route: 048
     Dates: end: 20120101
  5. GABAPENTIN [Concomitant]
     Dosage: UNK
  6. ATENOLOL [Concomitant]
     Dosage: UNK

REACTIONS (7)
  - ROTATOR CUFF SYNDROME [None]
  - ASTHENIA [None]
  - SINUS DISORDER [None]
  - DEPRESSION [None]
  - FALL [None]
  - ANXIETY [None]
  - FEELING ABNORMAL [None]
